FAERS Safety Report 9561261 (Version 2)
Quarter: 2013Q3

REPORT INFORMATION
  Report Type: Spontaneous
  Country: US (occurrence: US)
  Receive Date: 20130927
  Receipt Date: 20130927
  Transmission Date: 20140515
  Serious: Yes (Hospitalization)
  Sender: FDA-Public Use
  Company Number: US-BIOGENIDEC-2013BI057714

PATIENT
  Age: 51 Year
  Sex: Female

DRUGS (10)
  1. TECFIDERA [Suspect]
     Indication: MULTIPLE SCLEROSIS
     Route: 048
     Dates: start: 20130529, end: 20130605
  2. TECFIDERA [Suspect]
     Indication: MULTIPLE SCLEROSIS
     Route: 048
     Dates: start: 20130606, end: 20130614
  3. ZOLOFT [Concomitant]
  4. AMANTADINE [Concomitant]
  5. DICYCYCLOMINE [Concomitant]
  6. PRILOSEC [Concomitant]
  7. GEODON [Concomitant]
  8. PROVIGIL [Concomitant]
  9. NEURONTIN [Concomitant]
  10. ATIVAN [Concomitant]

REACTIONS (2)
  - Diarrhoea [Recovered/Resolved]
  - Rash pruritic [Not Recovered/Not Resolved]
